FAERS Safety Report 17118125 (Version 3)
Quarter: 2020Q1

REPORT INFORMATION
  Report Type: Spontaneous
  Country: ZA (occurrence: ZA)
  Receive Date: 20191205
  Receipt Date: 20200131
  Transmission Date: 20200409
  Serious: Yes (Hospitalization)
  Sender: FDA-Public Use
  Company Number: ZA-NOVOPROD-699683

PATIENT
  Age: 65 Year
  Sex: Female
  Weight: 92 kg

DRUGS (1)
  1. VAGIFEM [Suspect]
     Active Substance: ESTRADIOL
     Indication: HORMONE REPLACEMENT THERAPY
     Dosage: (1 TABLET ONCE A WEEK )
     Route: 067
     Dates: end: 201912

REACTIONS (2)
  - Oesophageal mass [Unknown]
  - Arrhythmia [Not Recovered/Not Resolved]

NARRATIVE: CASE EVENT DATE: 201911
